FAERS Safety Report 12362873 (Version 1)
Quarter: 2016Q2

REPORT INFORMATION
  Report Type: Spontaneous
  Country: FR (occurrence: FR)
  Receive Date: 20160512
  Receipt Date: 20160512
  Transmission Date: 20160815
  Serious: Yes (Hospitalization, Other)
  Sender: FDA-Public Use
  Company Number: FR-SYMPLMED PHARMACEUTICALS-2016SYMPLMED000214

PATIENT

DRUGS (4)
  1. KARDEGIC [Concomitant]
     Active Substance: ASPIRIN LYSINE
     Indication: PRODUCT USED FOR UNKNOWN INDICATION
     Dosage: 75 MG, QD
  2. COVERAM [Suspect]
     Active Substance: AMLODIPINE\PERINDOPRIL
     Indication: HYPERTENSION
     Dosage: 1 (5MG/5MG) TABLET, QD
     Route: 048
     Dates: start: 2013
  3. LIPANTHYL [Concomitant]
     Active Substance: FENOFIBRATE
     Indication: HYPERTRIGLYCERIDAEMIA
     Dosage: UNK
     Dates: end: 20160502
  4. LANSOPRAZOLE. [Concomitant]
     Active Substance: LANSOPRAZOLE
     Indication: PRODUCT USED FOR UNKNOWN INDICATION
     Dosage: 15 MG, QD

REACTIONS (11)
  - Fatigue [Not Recovered/Not Resolved]
  - Transient global amnesia [Recovered/Resolved]
  - Loss of consciousness [Recovered/Resolved]
  - Blood creatine phosphokinase increased [Unknown]
  - Drug ineffective [Unknown]
  - Chest pain [Recovered/Resolved]
  - Headache [Not Recovered/Not Resolved]
  - Muscle spasms [Unknown]
  - Malaise [Unknown]
  - Vomiting [Unknown]
  - Weight decreased [Not Recovered/Not Resolved]

NARRATIVE: CASE EVENT DATE: 20150112
